FAERS Safety Report 13117531 (Version 2)
Quarter: 2017Q1

REPORT INFORMATION
  Report Type: Spontaneous
  Country: PL (occurrence: PL)
  Receive Date: 20170116
  Receipt Date: 20170314
  Transmission Date: 20170428
  Serious: Yes (Hospitalization, Other)
  Sender: FDA-Public Use
  Company Number: PL-SYMPLMED PHARMACEUTICALS-2016SYMPLMED000396

PATIENT

DRUGS (10)
  1. CO VALSACOR [Concomitant]
     Indication: HYPERTENSION
     Dosage: (160MG/25MG) QD ORALLY, IN THE EVENING
     Dates: start: 2012, end: 20161201
  2. CAVINTON FORTE [Concomitant]
     Indication: ARTERIOSCLEROSIS
     Dosage: 10 MG DAILY ORALLY
     Dates: start: 2012
  3. BETASERC                           /00141802/ [Concomitant]
     Indication: VERTIGO
     Dosage: 24 MG QD IN THE MORNING
     Route: 048
     Dates: start: 2015
  4. CO-PRESTARIUM [Suspect]
     Active Substance: AMLODIPINE\PERINDOPRIL
     Dosage: 0.5 (10MG/5MG) TABLET, QD IN THE MORNING
     Route: 048
     Dates: start: 2017
  5. CAPTOPRIL. [Concomitant]
     Active Substance: CAPTOPRIL
     Indication: HYPERTENSION
     Dosage: 1 DF ON NEED
     Route: 048
     Dates: start: 2012, end: 20161202
  6. BISOCARD [Concomitant]
     Active Substance: BISOPROLOL
     Indication: CARDIAC DISORDER
     Dosage: 2.5 MG QD, IN THE MORNING
     Dates: start: 2012, end: 20161128
  7. CO-PRESTARIUM [Suspect]
     Active Substance: AMLODIPINE\PERINDOPRIL
     Indication: HYPERTENSION
     Dosage: 0.5 (10MG/5MG) TABLET, QD
     Route: 048
     Dates: start: 2012, end: 20161201
  8. CO-PRESTARIUM [Suspect]
     Active Substance: AMLODIPINE\PERINDOPRIL
     Indication: PRODUCT USE ISSUE
     Dosage: 0.5 (10MG/5MG) TABLET, BID
     Route: 048
     Dates: start: 20161202, end: 2017
  9. AFOBAM [Concomitant]
     Indication: HYPERTENSION
     Dosage: 1 DF ON NEED
     Route: 048
     Dates: start: 2012, end: 20161202
  10. ATORVOX [Concomitant]
     Active Substance: ATORVASTATIN
     Indication: HYPERCHOLESTEROLAEMIA
     Dosage: 10 MG QD IN THE EVENING
     Route: 048
     Dates: start: 2012

REACTIONS (8)
  - Bradycardia [Recovered/Resolved]
  - Blood pressure increased [Not Recovered/Not Resolved]
  - Vertigo [Unknown]
  - Tricuspid valve incompetence [Not Recovered/Not Resolved]
  - Mitral valve incompetence [Not Recovered/Not Resolved]
  - Syncope [Recovered/Resolved]
  - Blood pressure decreased [Recovered/Resolved]
  - Off label use [Unknown]

NARRATIVE: CASE EVENT DATE: 20160329
